FAERS Safety Report 5210531-2 (Version None)
Quarter: 2007Q1

REPORT INFORMATION
  Report Type: 
  Country: None (occurrence: None)
  Receive Date: 20070117
  Receipt Date: 20070110
  Transmission Date: 20070707
  Serious: Yes (Hospitalization)
  Sender: FDA-Public Use
  Company Number: US-JNJFOC-20061105814

PATIENT
  Sex: Male

DRUGS (7)
  1. REMICADE [Suspect]
  2. REMICADE [Suspect]
  3. REMICADE [Suspect]
     Indication: CROHN'S DISEASE
  4. 5-ASA [Concomitant]
  5. PREDNISONE TAB [Concomitant]
  6. CIPRO [Concomitant]
  7. FLAGYL [Concomitant]

REACTIONS (2)
  - ILEAL PERFORATION [None]
  - PELVIC ABSCESS [None]
